FAERS Safety Report 10189301 (Version 1)
Quarter: 2014Q2

REPORT INFORMATION
  Report Type: Spontaneous
  Country: DE (occurrence: DE)
  Receive Date: 20140522
  Receipt Date: 20140522
  Transmission Date: 20141212
  Serious: Yes (Life-Threatening, Hospitalization, Other)
  Sender: FDA-Public Use
  Company Number: DE-ASTRAZENECA-2014SE35104

PATIENT
  Age: 29 Year
  Sex: Female

DRUGS (2)
  1. QUETIAPINE [Suspect]
     Indication: SCHIZOPHRENIA, PARANOID TYPE
     Route: 048
  2. QUETIAPINE [Suspect]
     Indication: SCHIZOPHRENIA, PARANOID TYPE
     Dosage: UNKNOWN SUICIDAL DOSAGE
     Route: 048
     Dates: start: 20130719, end: 20130719

REACTIONS (11)
  - Exposure during pregnancy [Unknown]
  - Suicide attempt [Unknown]
  - Delusion [Unknown]
  - Hostility [Unknown]
  - Drug level increased [Unknown]
  - Convulsion [Recovered/Resolved]
  - Somnolence [Unknown]
  - Affect lability [Unknown]
  - Hypophagia [Unknown]
  - Intentional product misuse [Unknown]
  - Intentional product misuse [Unknown]
